FAERS Safety Report 4450560-X (Version None)
Quarter: 2004Q3

REPORT INFORMATION
  Report Type: 
  Country: None (occurrence: None)
  Receive Date: 20040914
  Receipt Date: 20040830
  Transmission Date: 20050211
  Serious: No
  Sender: FDA-Public Use
  Company Number: 04P-163-0271821-00

PATIENT
  Age: 46 Year
  Sex: Female
  Weight: 87.0906 kg

DRUGS (4)
  1. MERIDIA [Suspect]
     Indication: WEIGHT CONTROL
     Dosage: PER ORAL
     Route: 048
     Dates: start: 20040301, end: 20040824
  2. ESOMEPRAZOLE [Concomitant]
  3. ALBUTEROL [Concomitant]
  4. CONTRACEPTIVE [Concomitant]

REACTIONS (2)
  - BLOOD PRESSURE INCREASED [None]
  - FOOT FRACTURE [None]
